FAERS Safety Report 8998326 (Version 1)
Quarter: 2013Q1

REPORT INFORMATION
  Report Type: Spontaneous
  Country: FR (occurrence: FR)
  Receive Date: 20130104
  Receipt Date: 20130104
  Transmission Date: 20140127
  Serious: Yes (Other)
  Sender: FDA-Public Use
  Company Number: FR-NOVOPROD-366898

PATIENT
  Age: 45 Year
  Sex: Male
  Weight: 84 kg

DRUGS (4)
  1. VICTOZA [Suspect]
     Indication: TYPE 2 DIABETES MELLITUS
     Dosage: 1.2 MG, QD
     Route: 058
     Dates: start: 20121008, end: 20121117
  2. EUCREAS [Concomitant]
     Indication: TYPE 2 DIABETES MELLITUS
     Dosage: 2100 MG, QD
     Route: 048
     Dates: start: 201001
  3. DIAMICRON [Concomitant]
     Indication: TYPE 2 DIABETES MELLITUS
     Dosage: 30 MG, QD
     Route: 048
     Dates: start: 2008
  4. TAREG [Concomitant]
     Dosage: 160 MG, QD
     Route: 048
     Dates: start: 2009

REACTIONS (5)
  - Fatigue [Recovered/Resolved]
  - Vomiting [Recovered/Resolved]
  - Injection site pruritus [Recovered/Resolved]
  - Injection site rash [Recovered/Resolved]
  - Injection site warmth [Recovered/Resolved]
